FAERS Safety Report 8059769-X (Version None)
Quarter: 2012Q1

REPORT INFORMATION
  Report Type: 
  Country: None (occurrence: None)
  Receive Date: 20120119
  Receipt Date: 20120119
  Transmission Date: 20120608
  Serious: Yes (Hospitalization)
  Sender: FDA-Public Use
  Company Number: None

PATIENT
  Age: 70 Year
  Sex: Male
  Weight: 123 kg

DRUGS (11)
  1. NYSTATIN [Concomitant]
  2. PROCLORPERAZINE [Concomitant]
  3. PROTONIX [Concomitant]
  4. CREON [Concomitant]
  5. CARAFATE [Concomitant]
  6. IMODIUM [Concomitant]
  7. MORPHINE SULFATE [Concomitant]
  8. COUMADIN [Suspect]
     Indication: PULMONARY EMBOLISM
     Dosage: 2.5MG DAILY X5 DAYS PO CHRONIC
     Route: 048
  9. LORAZEPAM [Concomitant]
  10. AMBIEN [Concomitant]
  11. TRIPLE MIX  MOUTHWASH [Concomitant]

REACTIONS (9)
  - DYSPNOEA [None]
  - INTERNATIONAL NORMALISED RATIO INCREASED [None]
  - ABDOMINAL DISTENSION [None]
  - VENOUS THROMBOSIS [None]
  - THROMBOSIS MESENTERIC VESSEL [None]
  - VOMITING [None]
  - TREATMENT FAILURE [None]
  - ABDOMINAL PAIN [None]
  - MESENTERITIS [None]
